FAERS Safety Report 21335522 (Version 1)
Quarter: 2022Q3

REPORT INFORMATION
  Report Type: Other
  Country: GB (occurrence: GB)
  Receive Date: 20220915
  Receipt Date: 20220915
  Transmission Date: 20221027
  Serious: Yes (Other)
  Sender: FDA-Public Use
  Company Number: GB-STRIDES ARCOLAB LIMITED-2022SP011615

PATIENT
  Age: 35 Year
  Sex: Female
  Weight: 85 kg

DRUGS (3)
  1. FLUOXETINE [Suspect]
     Active Substance: FLUOXETINE HYDROCHLORIDE
     Indication: Depressed mood
     Dosage: 20 MILLIGRAM, DAILY FROM (FOR 14 DAYS OF 28 DAY CYCLE)
     Route: 065
     Dates: start: 201905, end: 201910
  2. FLUOXETINE [Suspect]
     Active Substance: FLUOXETINE HYDROCHLORIDE
     Dosage: 20 MILLIGRAM, DAILY (RE STARTED)
     Route: 065
     Dates: start: 202010
  3. FLUOXETINE [Suspect]
     Active Substance: FLUOXETINE HYDROCHLORIDE
     Dosage: 40 MILLIGRAM, DAILY
     Route: 065
     Dates: start: 202106, end: 20220801

REACTIONS (2)
  - Galactorrhoea [Recovered/Resolved]
  - Breast discharge [Unknown]

NARRATIVE: CASE EVENT DATE: 20220629
